FAERS Safety Report 10145670 (Version 1)
Quarter: 2014Q2

REPORT INFORMATION
  Report Type: Spontaneous
  Country: US (occurrence: US)
  Receive Date: 20140501
  Receipt Date: 20140501
  Transmission Date: 20141212
  Serious: No
  Sender: FDA-Public Use
  Company Number: US-ABBVIE-13P-163-1176690-00

PATIENT
  Age: 81 Year
  Sex: Male
  Weight: 81.72 kg

DRUGS (10)
  1. CREON [Suspect]
     Indication: PANCREATIC CARCINOMA
     Dosage: 2 CAPSULES AT BREAKFAST. 3-4 CAPSULES WITH DINNER.
     Dates: start: 2005
  2. HYDROCHLOROTHIAZIDE [Concomitant]
     Indication: HYPERTENSION
  3. LEVOTHYROXINE [Concomitant]
     Indication: HYPOTHYROIDISM
  4. LISINOPRIL [Concomitant]
     Indication: HYPERTENSION
  5. MAGNESIUM OXIDE [Concomitant]
     Indication: MAGNESIUM DEFICIENCY
  6. CALCIUM [Concomitant]
     Indication: PRODUCT USED FOR UNKNOWN INDICATION
  7. LIPITOR [Concomitant]
     Indication: BLOOD CHOLESTEROL INCREASED
  8. FLOMAX [Concomitant]
     Indication: PRODUCT USED FOR UNKNOWN INDICATION
  9. VITAMIN D [Concomitant]
     Indication: SUPPLEMENTATION THERAPY
  10. PEPCID [Concomitant]
     Indication: PRODUCT USED FOR UNKNOWN INDICATION

REACTIONS (3)
  - Glomerular filtration rate decreased [Not Recovered/Not Resolved]
  - Constipation [Recovered/Resolved]
  - Frequent bowel movements [Not Recovered/Not Resolved]
